FAERS Safety Report 8371677-3 (Version None)
Quarter: 2012Q2

REPORT INFORMATION
  Report Type: 
  Country: None (occurrence: None)
  Receive Date: 20120518
  Receipt Date: 20120509
  Transmission Date: 20120825
  Serious: Yes (Hospitalization)
  Sender: FDA-Public Use
  Company Number: GB-FRI-1000030585

PATIENT
  Age: 69 Year
  Sex: Male
  Weight: 77 kg

DRUGS (7)
  1. RANITIDINE [Concomitant]
     Indication: STRESS ULCER
     Dosage: 150MG TWICE DAILY
     Route: 048
  2. CITALOPRAM HYDROBROMIDE [Suspect]
     Indication: DEPRESSION
     Dosage: 20MG DAILY
     Route: 048
     Dates: end: 20120426
  3. LINEZOLID [Interacting]
     Indication: STAPHYLOCOCCAL INFECTION
     Dosage: 600MG INFUSION
     Route: 050
     Dates: start: 20120425, end: 20120426
  4. DIGOXIN [Concomitant]
     Indication: ATRIAL FIBRILLATION
     Dosage: 250MG DAILY
     Route: 048
  5. BISOPROLOL FUMARATE [Concomitant]
     Indication: ATRIAL FIBRILLATION
     Dosage: 5MG DAILY
     Route: 048
  6. ENOXAPARIN [Concomitant]
     Indication: THROMBOSIS PROPHYLAXIS
     Dosage: 40MG DAILY
     Route: 058
  7. TEMAZEPAM [Concomitant]
     Indication: INSOMNIA
     Dosage: 20MG DAILY
     Route: 048

REACTIONS (3)
  - TACHYCARDIA [None]
  - DRUG INTERACTION [None]
  - HYPOTENSION [None]
